FAERS Safety Report 16662326 (Version 2)
Quarter: 2020Q1

REPORT INFORMATION
  Report Type: Report from Study
  Country: US (occurrence: US)
  Receive Date: 20190802
  Receipt Date: 20200129
  Transmission Date: 20200409
  Serious: No
  Sender: FDA-Public Use
  Company Number: US-EXELIXIS-CABO-19018608

PATIENT
  Sex: Female
  Weight: 96.6 kg

DRUGS (3)
  1. LENVIMA [Concomitant]
     Active Substance: LENVATINIB
  2. CABOMETYX [Suspect]
     Active Substance: CABOZANTINIB S-MALATE
     Indication: RENAL CANCER
     Dosage: 60 MG, QD
     Route: 048
  3. AFINITOR [Concomitant]
     Active Substance: EVEROLIMUS

REACTIONS (5)
  - Blood pressure increased [Unknown]
  - Stress [Unknown]
  - Anxiety [Unknown]
  - Arthralgia [Unknown]
  - Headache [Not Recovered/Not Resolved]
